FAERS Safety Report 8159478-2 (Version None)
Quarter: 2012Q1

REPORT INFORMATION
  Report Type: 
  Country: None (occurrence: None)
  Receive Date: 20120223
  Receipt Date: 20120209
  Transmission Date: 20120608
  Serious: Yes (Hospitalization)
  Sender: FDA-Public Use
  Company Number: JP-ROCHE-1023836

PATIENT
  Sex: Male
  Weight: 60 kg

DRUGS (11)
  1. FLUOROURACIL [Concomitant]
     Route: 041
  2. TOPOTECAN [Concomitant]
     Indication: COLON CANCER METASTATIC
     Route: 041
  3. ALOXI [Concomitant]
     Route: 041
  4. FLUOROURACIL [Concomitant]
     Route: 040
  5. LEVOLEUCOVORIN CALCIUM [Concomitant]
     Route: 041
  6. FLUOROURACIL [Concomitant]
     Dosage: DOSAGE IS UNCERTAIN.
     Route: 040
     Dates: start: 20090925, end: 20100205
  7. FLUOROURACIL [Concomitant]
     Indication: COLON CANCER RECURRENT
     Dosage: DOSAGE IS UNCERTAIN.
     Route: 041
     Dates: start: 20090925, end: 20100201
  8. AVASTIN [Suspect]
     Indication: COLON CANCER RECURRENT
     Route: 041
     Dates: start: 20090925, end: 20111118
  9. OXALIPLATIN [Concomitant]
     Indication: COLON CANCER RECURRENT
     Dosage: DOSAGE IS UNCERTAIN.
     Route: 041
     Dates: start: 20090925, end: 20100205
  10. LEVOLEUCOVORIN CALCIUM [Concomitant]
     Indication: COLON CANCER RECURRENT
     Dosage: DOSAGE IS UNCERTAIN.
     Route: 041
     Dates: start: 20090925, end: 20100205
  11. DEXAMETHASONE SODIUM PHOSPHATE [Concomitant]
     Route: 041

REACTIONS (2)
  - HYPERTENSION [None]
  - CEREBRAL INFARCTION [None]
